FAERS Safety Report 11218301 (Version 1)
Quarter: 2015Q2

REPORT INFORMATION
  Report Type: Spontaneous
  Country: US (occurrence: US)
  Receive Date: 20150625
  Receipt Date: 20150625
  Transmission Date: 20150821
  Serious: No
  Sender: FDA-Public Use
  Company Number: US-MEDA-2015050028

PATIENT
  Sex: Female

DRUGS (1)
  1. DYMISTA [Suspect]
     Active Substance: AZELASTINE HYDROCHLORIDE\FLUTICASONE PROPIONATE

REACTIONS (4)
  - Erythema [Not Recovered/Not Resolved]
  - Choking sensation [Unknown]
  - Nasal discomfort [Unknown]
  - Rhinitis [Unknown]

NARRATIVE: CASE EVENT DATE: 201502
